FAERS Safety Report 20122867 (Version 2)
Quarter: 2021Q4

REPORT INFORMATION
  Report Type: Spontaneous
  Country: CN (occurrence: CN)
  Receive Date: 20211129
  Receipt Date: 20211130
  Transmission Date: 20220303
  Serious: Yes (Hospitalization, Other)
  Sender: FDA-Public Use
  Company Number: CN-ASTELLAS-2021US045166

PATIENT
  Age: 9 Year
  Sex: Female
  Weight: 31 kg

DRUGS (7)
  1. MYCAMINE [Suspect]
     Active Substance: MICAFUNGIN SODIUM
     Indication: Antifungal prophylaxis
     Route: 041
     Dates: start: 20211028, end: 20211105
  2. MYCAMINE [Suspect]
     Active Substance: MICAFUNGIN SODIUM
     Dosage: 100 MG, ONCE DAILY (DOSE WAS ADJUSTED)
     Route: 041
     Dates: start: 20211105
  3. IMIPENEM AND CILASTATIN [Suspect]
     Active Substance: CILASTATIN SODIUM\IMIPENEM
     Indication: Infection prophylaxis
     Route: 041
     Dates: start: 20211023, end: 20211102
  4. AZTREONAM [Suspect]
     Active Substance: AZTREONAM
     Indication: Infection prophylaxis
     Route: 041
     Dates: start: 20211102, end: 20211105
  5. VANCOMYCIN HYDROCHLORIDE [Suspect]
     Active Substance: VANCOMYCIN HYDROCHLORIDE
     Indication: Infection prophylaxis
     Dosage: 0.3 G, 4 TIMES DAILY
     Route: 041
     Dates: start: 20211027, end: 20211103
  6. SODIUM CHLORIDE [Concomitant]
     Active Substance: SODIUM CHLORIDE
     Indication: Product used for unknown indication
     Route: 041
     Dates: start: 20211028, end: 20211105
  7. SODIUM CHLORIDE [Concomitant]
     Active Substance: SODIUM CHLORIDE
     Route: 041
     Dates: start: 20211028, end: 20211105

REACTIONS (1)
  - Liver injury [Not Recovered/Not Resolved]

NARRATIVE: CASE EVENT DATE: 20211105
